FAERS Safety Report 9341902 (Version 1)
Quarter: 2013Q2

REPORT INFORMATION
  Report Type: Spontaneous
  Country: CN (occurrence: CN)
  Receive Date: 20130611
  Receipt Date: 20130611
  Transmission Date: 20140414
  Serious: Yes (Other)
  Sender: FDA-Public Use
  Company Number: CN-ASTRAZENECA-2013SE41431

PATIENT
  Sex: Female

DRUGS (2)
  1. ESOMEPRAZOLE [Suspect]
     Indication: UPPER GASTROINTESTINAL HAEMORRHAGE
     Route: 042
     Dates: start: 20121001, end: 20121012
  2. OCTREOTIDE [Concomitant]

REACTIONS (2)
  - Haematuria [Unknown]
  - Butterfly rash [Unknown]
